FAERS Safety Report 18450440 (Version 2)
Quarter: 2021Q1

REPORT INFORMATION
  Report Type: Report from Study
  Country: US (occurrence: US)
  Receive Date: 20201102
  Receipt Date: 20210105
  Transmission Date: 20210419
  Serious: Yes (Other)
  Sender: FDA-Public Use
  Company Number: US-BIOGEN-2020BI00939587

PATIENT
  Sex: Female

DRUGS (1)
  1. TYSABRI [Suspect]
     Active Substance: NATALIZUMAB
     Indication: MULTIPLE SCLEROSIS
     Dosage: INFUSED OVER 1 HOUR
     Route: 042
     Dates: start: 20191127

REACTIONS (7)
  - Pain [Unknown]
  - Fatigue [Recovered/Resolved]
  - Feeling abnormal [Not Recovered/Not Resolved]
  - Blindness [Not Recovered/Not Resolved]
  - Therapeutic response shortened [Not Recovered/Not Resolved]
  - Gait disturbance [Not Recovered/Not Resolved]
  - Mobility decreased [Unknown]
